FAERS Safety Report 8006238-9 (Version None)
Quarter: 2011Q4

REPORT INFORMATION
  Report Type: 
  Country: None (occurrence: None)
  Receive Date: 20111226
  Receipt Date: 20111212
  Transmission Date: 20120403
  Serious: Yes (Hospitalization)
  Sender: FDA-Public Use
  Company Number: US-ELI_LILLY_AND_COMPANY-US201106000880

PATIENT
  Sex: Female

DRUGS (3)
  1. FORTEO [Suspect]
     Indication: OSTEOPOROSIS
     Dosage: 20 UG, QD
     Route: 065
     Dates: start: 20110401
  2. FORTEO [Suspect]
     Dosage: 20 UNK, UNK
  3. FORTEO [Suspect]
     Dosage: 20 UG, QD
     Route: 065

REACTIONS (7)
  - WEIGHT INCREASED [None]
  - GAIT DISTURBANCE [None]
  - PULMONARY OEDEMA [None]
  - PAIN IN EXTREMITY [None]
  - WEIGHT DECREASED [None]
  - MUSCLE SPASMS [None]
  - INFLAMMATION [None]
